FAERS Safety Report 16224273 (Version 3)
Quarter: 2019Q2

REPORT INFORMATION
  Report Type: Spontaneous
  Country: JP (occurrence: JP)
  Receive Date: 20190422
  Receipt Date: 20190607
  Transmission Date: 20190711
  Serious: Yes (Hospitalization)
  Sender: FDA-Public Use
  Company Number: JP-JNJFOC-20190430864

PATIENT
  Age: 8 Decade
  Sex: Male

DRUGS (1)
  1. STELARA [Suspect]
     Active Substance: USTEKINUMAB
     Indication: PSORIASIS
     Dosage: USTEKINUMAB(GENETICAL RECOMBINATION):45MG
     Route: 058

REACTIONS (1)
  - Compression fracture [Recovered/Resolved with Sequelae]
